FAERS Safety Report 7935783-7 (Version None)
Quarter: 2011Q4

REPORT INFORMATION
  Report Type: 
  Country: None (occurrence: None)
  Receive Date: 20111123
  Receipt Date: 20111110
  Transmission Date: 20120403
  Serious: Yes (Other)
  Sender: FDA-Public Use
  Company Number: US-ELI_LILLY_AND_COMPANY-US201110001083

PATIENT
  Sex: Female

DRUGS (2)
  1. FORTEO [Suspect]
     Indication: OSTEOPOROSIS
     Dosage: 20 UG, QD
     Route: 065
  2. XANAX [Concomitant]
     Indication: INSOMNIA
     Dosage: 2 MG, UNKNOWN

REACTIONS (4)
  - WRIST FRACTURE [None]
  - HIP FRACTURE [None]
  - SOMNAMBULISM [None]
  - FALL [None]
